FAERS Safety Report 20870670 (Version 1)
Quarter: 2022Q2

REPORT INFORMATION
  Report Type: Spontaneous
  Country: JP (occurrence: JP)
  Receive Date: 20220525
  Receipt Date: 20220525
  Transmission Date: 20220721
  Serious: Yes (Hospitalization)
  Sender: FDA-Public Use
  Company Number: JP-LUPIN PHARMACEUTICALS INC.-2022-07409

PATIENT
  Age: 71 Year
  Sex: Male
  Weight: 53.6 kg

DRUGS (11)
  1. AMLODIPINE [Suspect]
     Active Substance: AMLODIPINE BESYLATE
     Indication: Hypertension
     Dosage: 5 MG, QD
     Route: 065
  2. VALSARTAN [Suspect]
     Active Substance: VALSARTAN
     Indication: Hypertension
     Dosage: 80 MG, QD
     Route: 065
  3. PALONOSETRON [Suspect]
     Active Substance: PALONOSETRON
     Indication: Prophylaxis of nausea and vomiting
     Dosage: 0.75 MG
     Route: 065
     Dates: start: 20200902
  4. APREPITANT [Suspect]
     Active Substance: APREPITANT
     Indication: Prophylaxis of nausea and vomiting
     Dosage: 125 MG, QD, ON DAY 2
     Route: 065
     Dates: start: 202009, end: 202009
  5. APREPITANT [Suspect]
     Active Substance: APREPITANT
     Dosage: 80 MG, QD, ON DAY 3 - 4
     Route: 065
     Dates: start: 202009, end: 202009
  6. IRINOTECAN [Suspect]
     Active Substance: IRINOTECAN
     Indication: Small cell lung cancer extensive stage
     Dosage: 60 MILLIGRAM/SQ. METER (IRINOTECAN 60 MG/M2 FOR 3 CONSECUTIVE WEEKS FOLLOWED BY 1-WEEK REST)
     Route: 065
     Dates: start: 20200902
  7. CISPLATIN [Concomitant]
     Active Substance: CISPLATIN
     Indication: Small cell lung cancer extensive stage
     Dosage: 60 MILLIGRAM/SQ. METER (CISPLATIN 60 MG/M2 ON DAY 1)
     Route: 065
     Dates: start: 20200902
  8. DEXAMETHASONE [Concomitant]
     Active Substance: DEXAMETHASONE
     Indication: Prophylaxis of nausea and vomiting
     Dosage: 9.5 MG, QD
     Route: 065
     Dates: start: 20200902
  9. DEXAMETHASONE [Concomitant]
     Active Substance: DEXAMETHASONE
     Dosage: 5.7 MG, QD
     Route: 065
     Dates: start: 202009
  10. FEBUXOSTAT [Concomitant]
     Active Substance: FEBUXOSTAT
     Indication: Product used for unknown indication
     Dosage: 60 MG, QD
     Route: 065
  11. PEGFILGRASTIM [Concomitant]
     Active Substance: PEGFILGRASTIM
     Indication: Prophylaxis
     Dosage: 3.6 MG, QD
     Route: 065
     Dates: start: 202009

REACTIONS (1)
  - Hypotension [Recovered/Resolved]
